FAERS Safety Report 6456235-X (Version None)
Quarter: 2009Q4

REPORT INFORMATION
  Report Type: 
  Country: None (occurrence: None)
  Receive Date: 20091120
  Receipt Date: 20091110
  Transmission Date: 20100525
  Serious: Yes (Hospitalization)
  Sender: FDA-Public Use
  Company Number: TPA2009A03664

PATIENT
  Age: 7 Decade
  Sex: Female

DRUGS (2)
  1. KAPIDEX [Suspect]
     Indication: DRUG USE FOR UNKNOWN INDICATION
     Dosage: 60 MG, 1 IN 1 D, PER ORAL
     Route: 048
     Dates: start: 20090101, end: 20090101
  2. UNSPECIFIED PAIN MEDICATIONS (ANALGESICS) [Concomitant]

REACTIONS (1)
  - INTESTINAL OBSTRUCTION [None]
